FAERS Safety Report 14695055 (Version 1)
Quarter: 2018Q1

REPORT INFORMATION
  Report Type: Spontaneous
  Country: FR (occurrence: FR)
  Receive Date: 20180329
  Receipt Date: 20180329
  Transmission Date: 20180509
  Serious: Yes (Other)
  Sender: FDA-Public Use
  Company Number: FR-EMD SERONO-9017670

PATIENT
  Sex: Female
  Weight: 64 kg

DRUGS (3)
  1. GONAL-F [Suspect]
     Active Substance: FOLLITROPIN
     Indication: IN VITRO FERTILISATION
     Dosage: GONAL-F IN VIEW OF FECUNDATION IN VITRO
  2. GONAL-F [Suspect]
     Active Substance: FOLLITROPIN
     Dosage: 5 TO 6 CYCLES OF STIMULATION
  3. GONAL-F [Suspect]
     Active Substance: FOLLITROPIN
     Indication: CONTROLLED OVARIAN STIMULATION
     Dosage: GONAL-F FOR OVARIAN STIMULATION

REACTIONS (3)
  - Weight increased [Unknown]
  - Acne [Unknown]
  - Hair growth abnormal [Unknown]
